FAERS Safety Report 5595529-7 (Version None)
Quarter: 2008Q1

REPORT INFORMATION
  Report Type: 
  Country: None (occurrence: None)
  Receive Date: 20080116
  Receipt Date: 20080116
  Transmission Date: 20080703
  Serious: Yes (Hospitalization)
  Sender: FDA-Public Use
  Company Number: None

PATIENT
  Sex: Female
  Weight: 73 kg

DRUGS (2)
  1. L-ASPARAGINASE [Suspect]
     Dosage: 36000 MILLION IU
     Dates: start: 20080107, end: 20080108
  2. METHOTREXATE [Suspect]
     Dosage: 400 MG
     Dates: end: 20080107

REACTIONS (7)
  - LARYNGEAL ULCERATION [None]
  - MOUTH ULCERATION [None]
  - MUCOSAL INFLAMMATION [None]
  - NEUTROPHIL COUNT ABNORMAL [None]
  - NEUTROPHIL COUNT DECREASED [None]
  - PHARYNGOLARYNGEAL PAIN [None]
  - STAPHYLOCOCCAL INFECTION [None]
